FAERS Safety Report 6763830-7 (Version None)
Quarter: 2010Q2

REPORT INFORMATION
  Report Type: 
  Country: None (occurrence: None)
  Receive Date: 20100608
  Receipt Date: 20100525
  Transmission Date: 20101027
  Serious: Yes (Hospitalization)
  Sender: FDA-Public Use
  Company Number: A-NJ2010-36843

PATIENT
  Age: 52 Year
  Sex: Male

DRUGS (4)
  1. TRACLEER [Suspect]
     Indication: PULMONARY ARTERIAL HYPERTENSION
     Dosage: 125 MG BID ORAL, 62.5 MG, BID, ORAL
     Route: 048
     Dates: start: 20041116, end: 20041201
  2. TRACLEER [Suspect]
     Indication: PULMONARY ARTERIAL HYPERTENSION
     Dosage: 125 MG BID ORAL, 62.5 MG, BID, ORAL
     Route: 048
     Dates: start: 20041201
  3. REVATIO [Concomitant]
  4. COUMADIN [Concomitant]

REACTIONS (2)
  - ARRHYTHMIA [None]
  - PULMONARY EMBOLISM [None]
